FAERS Safety Report 15602853 (Version 2)
Quarter: 2019Q1

REPORT INFORMATION
  Report Type: Spontaneous
  Country: US (occurrence: US)
  Receive Date: 20181109
  Receipt Date: 20190328
  Transmission Date: 20190417
  Serious: Yes (Hospitalization, Other)
  Sender: FDA-Public Use
  Company Number: US-ALLERGAN-1852425US

PATIENT
  Sex: Female
  Weight: 86.2 kg

DRUGS (26)
  1. ALLEGRA [Concomitant]
     Active Substance: FEXOFENADINE HYDROCHLORIDE
     Dosage: 60 MG, ^^1X/DAY, SOMETIMES 2X/DAY AND SOMETIMES NONE^^
  2. PREPARATION H NOS [Concomitant]
     Active Substance: COCOA BUTTER\PETROLATUM\PHENYLEPHRINE HYDROCHLORIDE\PHENYLEPHRINE HYDROCHLORIDE OR MINERAL OIL
     Indication: HAEMORRHOIDS
     Dosage: UNK
  3. GOCOVRI [Suspect]
     Active Substance: AMANTADINE
     Dosage: 137 UNK, QHS
     Route: 048
     Dates: start: 20181006, end: 20181019
  4. GOCOVRI [Suspect]
     Active Substance: AMANTADINE
     Dosage: 274 MG, QHS
     Route: 048
     Dates: start: 20181003, end: 20181005
  5. GOCOVRI [Suspect]
     Active Substance: AMANTADINE
     Dosage: 137 MG, QHS
     Route: 048
     Dates: start: 20180919, end: 20181002
  6. TYLENOL [Concomitant]
     Active Substance: ACETAMINOPHEN
     Dosage: 650 MG, 2-3 PER DAY
  7. VITAMIN B12 [Concomitant]
     Active Substance: CYANOCOBALAMIN
     Dosage: 1000 ?G, UNK
  8. LEXAPRO [Suspect]
     Active Substance: ESCITALOPRAM OXALATE
     Indication: PRODUCT USED FOR UNKNOWN INDICATION
     Dosage: 5 DF, QD
     Route: 048
     Dates: start: 2016
  9. GOCOVRI [Suspect]
     Active Substance: AMANTADINE
     Indication: DYSKINESIA
     Dosage: 137 MG, QHS
     Route: 048
     Dates: start: 20181203
  10. TUMS SMOOTH DISSOLVE [Concomitant]
     Dosage: 750 MG, AS NEEDED
  11. CLONAZEPAM. [Concomitant]
     Active Substance: CLONAZEPAM
     Dosage: 0.5 MG, UNK
  12. METOPROLOL SUCCINATE. [Concomitant]
     Active Substance: METOPROLOL SUCCINATE
     Indication: PERIPHERAL SWELLING
     Dosage: 0.5 DF, QHS
  13. NYAMYC [Concomitant]
     Active Substance: NYSTATIN
     Indication: PRODUCT USED FOR UNKNOWN INDICATION
     Dosage: 10000 UNITS, UNK
  14. SYSTANE (HYPROMELLOSE 2910 (4000 MPA.S)) [Concomitant]
     Active Substance: HYPROMELLOSE 2910 (4000 MPA.S)
     Indication: NEUROPATHY PERIPHERAL
     Dosage: UNK
  15. LEXAPRO [Suspect]
     Active Substance: ESCITALOPRAM OXALATE
     Dosage: 5 MG, Q6HR
     Route: 048
     Dates: start: 2016, end: 2018
  16. HYDROCORTISONE. [Concomitant]
     Active Substance: HYDROCORTISONE
     Indication: HAEMORRHOIDS
     Dosage: 5 MG, UNK
  17. RANITIDINE. [Concomitant]
     Active Substance: RANITIDINE
     Indication: DYSPEPSIA
     Dosage: 150 MG, UNK
  18. GOCOVRI [Suspect]
     Active Substance: AMANTADINE
     Dosage: 274 MG, QHS
     Route: 048
     Dates: start: 20181020, end: 20181202
  19. MIRALAX [Concomitant]
     Active Substance: POLYETHYLENE GLYCOL 3350
     Dosage: UNK
  20. CRANBERRY/D3 [Concomitant]
  21. VITAMIN D2 [Concomitant]
     Active Substance: ERGOCALCIFEROL
     Dosage: 400 UNITS, UNK
  22. PARCOPA [Concomitant]
     Active Substance: CARBIDOPA\LEVODOPA
     Dosage: 25/1000 MG UNK
  23. MOTRIN IB [Concomitant]
     Active Substance: IBUPROFEN
     Indication: MUSCULOSKELETAL STIFFNESS
     Dosage: 200 MG, PRN
  24. ROPINIROLE. [Concomitant]
     Active Substance: ROPINIROLE
     Dosage: 4 MG, UNK
  25. STALEVO [Concomitant]
     Active Substance: CARBIDOPA\ENTACAPONE\LEVODOPA
     Dosage: UNK
  26. BEPREVE [Concomitant]
     Active Substance: BEPOTASTINE BESILATE

REACTIONS (25)
  - Panic attack [Recovering/Resolving]
  - Hypertension [Not Recovered/Not Resolved]
  - Pain in extremity [Not Recovered/Not Resolved]
  - Swelling [Not Recovered/Not Resolved]
  - Tooth abscess [Not Recovered/Not Resolved]
  - Nausea [Recovered/Resolved]
  - Tremor [Recovering/Resolving]
  - Abdominal pain upper [Not Recovered/Not Resolved]
  - Intentional overdose [Unknown]
  - Headache [Not Recovered/Not Resolved]
  - Urinary incontinence [Recovering/Resolving]
  - Feeling hot [Not Recovered/Not Resolved]
  - Neuropathy peripheral [Not Recovered/Not Resolved]
  - Cellulitis [Recovering/Resolving]
  - Depression [Not Recovered/Not Resolved]
  - Skin discolouration [Not Recovered/Not Resolved]
  - Hypoaesthesia [Recovering/Resolving]
  - Blister [Not Recovered/Not Resolved]
  - Vision blurred [Not Recovered/Not Resolved]
  - Gait disturbance [Not Recovered/Not Resolved]
  - Insomnia [Recovering/Resolving]
  - Dyspnoea [Recovering/Resolving]
  - Chills [Not Recovered/Not Resolved]
  - Heart rate increased [Not Recovered/Not Resolved]
  - Peripheral swelling [Not Recovered/Not Resolved]

NARRATIVE: CASE EVENT DATE: 2014
